FAERS Safety Report 9387134 (Version 1)
Quarter: 2013Q3

REPORT INFORMATION
  Report Type: Spontaneous
  Country: GB (occurrence: None)
  Receive Date: 20130702
  Receipt Date: 20130702
  Transmission Date: 20140515
  Serious: Yes (Hospitalization)
  Sender: FDA-Public Use
  Company Number: AUR-APL-2013-05367

PATIENT
  Age: 79 Year
  Sex: Male
  Weight: 81 kg

DRUGS (11)
  1. TERBINAFINE (TERBINAFINE) [Suspect]
     Indication: ONYCHOMYCOSIS
     Dosage: (250 MG, 1 IN 1 D)
     Route: 048
     Dates: start: 20130307, end: 20130605
  2. BISOPROLOL (BISOPROLOL) [Concomitant]
  3. CEFALEXIN (CEFALEXIN) [Concomitant]
  4. CLOPIDOGREL (CLOPIDOGREL) [Concomitant]
  5. FOLIC ACID (FOLIC ACID) [Concomitant]
  6. FUROSEMIDE (FUROSEMIDE) [Concomitant]
  7. MOVICOL [Concomitant]
  8. SENNA (SENNA ALEXANDRINA) [Concomitant]
  9. SIMVASTATIN (SIMVASTATIN) [Concomitant]
  10. THIAMINE (THIAMINE) [Concomitant]
  11. TRIMETHOPRIM (TRIMETHOPRIM) [Concomitant]

REACTIONS (5)
  - Lethargy [None]
  - Urinary retention [None]
  - Medication error [None]
  - Blood creatinine increased [None]
  - Blood alkaline phosphatase increased [None]
